FAERS Safety Report 13662875 (Version 1)
Quarter: 2017Q2

REPORT INFORMATION
  Report Type: Spontaneous
  Country: US (occurrence: US)
  Receive Date: 20170619
  Receipt Date: 20170619
  Transmission Date: 20170830
  Serious: Yes (Hospitalization, Other)
  Sender: FDA-Public Use
  Company Number: US-JNJFOC-20170607071

PATIENT

DRUGS (1)
  1. DIPHENHYDRAMINE. [Suspect]
     Active Substance: DIPHENHYDRAMINE
     Indication: PRODUCT USED FOR UNKNOWN INDICATION
     Route: 065

REACTIONS (6)
  - CD8 lymphocytes decreased [Unknown]
  - Subendocardial ischaemia [Unknown]
  - Adverse drug reaction [Unknown]
  - Heart-lung transplant rejection [Unknown]
  - Hepatitis [Unknown]
  - Blood creatinine increased [Unknown]
